FAERS Safety Report 12120405 (Version 2)
Quarter: 2016Q1

REPORT INFORMATION
  Report Type: Report from Study
  Country: ES (occurrence: ES)
  Receive Date: 20160226
  Receipt Date: 20160323
  Transmission Date: 20160526
  Serious: Yes (Death, Hospitalization, Other)
  Sender: FDA-Public Use
  Company Number: ES-BRISTOL-MYERS SQUIBB COMPANY-BMS-2015-026637

PATIENT
  Age: 76 Year
  Sex: Female
  Weight: 114 kg

DRUGS (1)
  1. NIVOLUMAB [Suspect]
     Active Substance: NIVOLUMAB
     Indication: MALIGNANT MELANOMA
     Dosage: 342 MG, Q2WK
     Route: 042
     Dates: start: 20150116

REACTIONS (3)
  - Arthritis infective [Recovering/Resolving]
  - Malignant neoplasm progression [Fatal]
  - Staphylococcal infection [Recovering/Resolving]

NARRATIVE: CASE EVENT DATE: 20150404
